FAERS Safety Report 14982828 (Version 1)
Quarter: 2018Q2

REPORT INFORMATION
  Report Type: Spontaneous
  Country: US (occurrence: US)
  Receive Date: 20180607
  Receipt Date: 20180607
  Transmission Date: 20180711
  Serious: No
  Sender: FDA-Public Use
  Company Number: US-GLAXOSMITHKLINE-US2017203695

PATIENT
  Sex: Female

DRUGS (1)
  1. DICLOFENAC GEL [Suspect]
     Active Substance: DICLOFENAC
     Indication: BACK DISORDER
     Dosage: UNK

REACTIONS (1)
  - Product use issue [Unknown]
